FAERS Safety Report 8168600-3 (Version None)
Quarter: 2012Q1

REPORT INFORMATION
  Report Type: 
  Country: None (occurrence: None)
  Receive Date: 20120227
  Receipt Date: 20120227
  Transmission Date: 20120608
  Serious: Yes (Life-Threatening, Hospitalization, Other)
  Sender: FDA-Public Use
  Company Number: None

PATIENT
  Age: 51 Year
  Sex: Female
  Weight: 80.739 kg

DRUGS (1)
  1. ENJUVIA [Suspect]
     Indication: MENOPAUSAL SYMPTOMS
     Dosage: 0.625 MG
     Route: 048
     Dates: start: 20040615, end: 20120223

REACTIONS (1)
  - DEEP VEIN THROMBOSIS [None]
